FAERS Safety Report 16269050 (Version 2)
Quarter: 2019Q3

REPORT INFORMATION
  Report Type: Report from Study
  Country: None (occurrence: US)
  Receive Date: 20190503
  Receipt Date: 20190703
  Transmission Date: 20191004
  Serious: Yes (Other)
  Sender: FDA-Public Use
  Company Number: US-ABBVIE-19S-163-2764932-00

PATIENT
  Sex: Male

DRUGS (1)
  1. ANDROGEL [Suspect]
     Active Substance: TESTOSTERONE
     Indication: PRODUCT USED FOR UNKNOWN INDICATION
     Route: 061
     Dates: start: 201603, end: 201609

REACTIONS (11)
  - Depression [Unknown]
  - Hypogonadism male [Unknown]
  - Acute kidney injury [Unknown]
  - Hypercholesterolaemia [Unknown]
  - Essential hypertension [Unknown]
  - Diabetic neuropathy [Unknown]
  - Gastrooesophageal reflux disease [Unknown]
  - Diabetic neuropathic ulcer [Unknown]
  - Actinic keratosis [Unknown]
  - Back pain [Unknown]
  - Hyperlipidaemia [Unknown]
